FAERS Safety Report 16304830 (Version 3)
Quarter: 2019Q3

REPORT INFORMATION
  Report Type: Spontaneous
  Country: US (occurrence: US)
  Receive Date: 20190513
  Receipt Date: 20190711
  Transmission Date: 20191004
  Serious: Yes (Hospitalization, Other)
  Sender: FDA-Public Use
  Company Number: US-ACTELION-A-NJ2019-188988

PATIENT
  Sex: Male

DRUGS (3)
  1. ADEMPAS [Concomitant]
     Active Substance: RIOCIGUAT
  2. OPSUMIT [Suspect]
     Active Substance: MACITENTAN
     Indication: PULMONARY ARTERIAL HYPERTENSION
     Dosage: 10 MG, QD
     Route: 048
     Dates: start: 20190321, end: 20190626
  3. SILDENAFIL. [Concomitant]
     Active Substance: SILDENAFIL

REACTIONS (6)
  - Endarterectomy [Unknown]
  - Hospitalisation [Unknown]
  - Thrombosis [Unknown]
  - Headache [Not Recovered/Not Resolved]
  - Pulmonary thrombosis [Unknown]
  - Skin discolouration [Not Recovered/Not Resolved]
